FAERS Safety Report 4443958-7 (Version None)
Quarter: 2004Q3

REPORT INFORMATION
  Report Type: 
  Country: None (occurrence: None)
  Receive Date: 20040729
  Receipt Date: 20020418
  Transmission Date: 20050211
  Serious: Yes (Other)
  Sender: FDA-Public Use
  Company Number: KII-2002-0009453

PATIENT
  Age: 34 Year
  Sex: Male

DRUGS (2)
  1. MS CONTIN [Suspect]
     Dosage: 30 MG, BID, ORAL
     Route: 048
     Dates: start: 20030601
  2. CYCLOBENZAPRINE HCL [Suspect]

REACTIONS (1)
  - DRUG ABUSER [None]
